FAERS Safety Report 7699046-X (Version None)
Quarter: 2011Q3

REPORT INFORMATION
  Report Type: 
  Country: None (occurrence: None)
  Receive Date: 20110819
  Receipt Date: 20110809
  Transmission Date: 20111222
  Serious: Yes (Other)
  Sender: FDA-Public Use
  Company Number: PHEH2011US01022

PATIENT
  Sex: Female

DRUGS (5)
  1. ACTIMEL [Concomitant]
  2. RECLAST [Suspect]
     Dosage: UNK UKN, UNK
     Route: 042
     Dates: start: 20110802
  3. RECLAST [Suspect]
     Dosage: UNK UKN, UNK
     Route: 042
     Dates: start: 20100501
  4. FOSAMAX [Concomitant]
     Dosage: UNK UKN, UNK
  5. BONIVA [Concomitant]
     Dosage: UNK UKN, UNK

REACTIONS (3)
  - BONE DENSITY DECREASED [None]
  - PELVIC FRACTURE [None]
  - FOOT FRACTURE [None]
